FAERS Safety Report 7150187-5 (Version None)
Quarter: 2010Q4

REPORT INFORMATION
  Report Type: 
  Country: None (occurrence: None)
  Receive Date: 20101123
  Receipt Date: 20100726
  Transmission Date: 20110411
  Serious: No
  Sender: FDA-Public Use
  Company Number: 004594

PATIENT
  Sex: Female

DRUGS (4)
  1. CIMZIA [Suspect]
     Indication: CROHN'S DISEASE
     Dosage: 200 MG  1X/2 WEEKS SUBCUTANEOUS
     Route: 058
     Dates: start: 20090217
  2. CIMZIA [Suspect]
     Dosage: 200 MG 1X/2 WEEKS SUBCUTANEOUS
     Route: 058
  3. IMURAN [Concomitant]
  4. FLAGYL [Concomitant]

REACTIONS (1)
  - ABDOMINAL PAIN [None]
